FAERS Safety Report 9193109 (Version 2)
Quarter: 2013Q2

REPORT INFORMATION
  Report Type: Spontaneous
  Country: TR (occurrence: TR)
  Receive Date: 20130327
  Receipt Date: 20130410
  Transmission Date: 20140414
  Serious: Yes (Life-Threatening, Other)
  Sender: FDA-Public Use
  Company Number: TR-ASTELLAS-2013EU002578

PATIENT
  Age: 65 Year
  Sex: Male
  Weight: 69 kg

DRUGS (5)
  1. PROGRAF [Suspect]
     Indication: LIVER TRANSPLANT
     Dosage: 1 DF, BID
     Route: 048
     Dates: start: 20130219, end: 20130302
  2. DELTACORTRIL                       /00016201/ [Concomitant]
     Dosage: UNK
     Route: 065
  3. KEPRA [Concomitant]
     Dosage: UNK
     Route: 065
  4. BACTRIM [Concomitant]
     Dosage: UNK
     Route: 065
  5. SANDIMMUN NEORAL [Concomitant]
     Dosage: UNK
     Route: 065

REACTIONS (2)
  - Myalgia [Recovered/Resolved]
  - Muscular weakness [Recovered/Resolved]
